FAERS Safety Report 16304656 (Version 1)
Quarter: 2019Q2

REPORT INFORMATION
  Report Type: Spontaneous
  Country: US (occurrence: US)
  Receive Date: 20190513
  Receipt Date: 20190513
  Transmission Date: 20190711
  Serious: Yes (Death, Hospitalization, Disabling, Other)
  Sender: FDA-Public Use
  Company Number: US-009507513-1905USA002849

PATIENT
  Age: 75 Year
  Sex: Male
  Weight: 108.84 kg

DRUGS (2)
  1. KEYTRUDA [Suspect]
     Active Substance: PEMBROLIZUMAB
     Indication: PANCREATIC CARCINOMA
     Dosage: UNK
     Dates: start: 20190124
  2. KEYTRUDA [Suspect]
     Active Substance: PEMBROLIZUMAB
     Indication: METASTASES TO LIVER
     Dosage: UNK
     Dates: start: 20190213, end: 20190213

REACTIONS (8)
  - Condition aggravated [Unknown]
  - Product use in unapproved indication [Unknown]
  - Chromaturia [Unknown]
  - Discomfort [Unknown]
  - Myocardial infarction [Fatal]
  - Myositis [Unknown]
  - Dysphagia [Unknown]
  - Pain [Unknown]

NARRATIVE: CASE EVENT DATE: 2019
